FAERS Safety Report 20711335 (Version 4)
Quarter: 2022Q3

REPORT INFORMATION
  Report Type: Spontaneous
  Country: US (occurrence: US)
  Receive Date: 20220414
  Receipt Date: 20220705
  Transmission Date: 20221027
  Serious: Yes (Death, Life-Threatening)
  Sender: FDA-Public Use
  Company Number: US-NOVARTISPH-NVSC2022US084548

PATIENT
  Age: 36 Year
  Sex: Male

DRUGS (1)
  1. COSENTYX [Suspect]
     Active Substance: SECUKINUMAB
     Indication: Product used for unknown indication
     Dosage: UNK
     Route: 065

REACTIONS (1)
  - COVID-19 [Fatal]
